FAERS Safety Report 5131746-8 (Version None)
Quarter: 2006Q4

REPORT INFORMATION
  Report Type: 
  Country: None (occurrence: None)
  Receive Date: 20061016
  Receipt Date: 20060929
  Transmission Date: 20070319
  Serious: Yes (Other)
  Sender: FDA-Public Use
  Company Number: DSA_28785_2006

PATIENT
  Age: 75 Year
  Sex: Male

DRUGS (1)
  1. RENIVACE [Suspect]
     Dosage: 7.5 MH Q DAY PO
     Route: 048

REACTIONS (2)
  - DEPRESSED LEVEL OF CONSCIOUSNESS [None]
  - HYPOGLYCAEMIA [None]
